FAERS Safety Report 5038130-6 (Version None)
Quarter: 2006Q2

REPORT INFORMATION
  Report Type: 
  Country: None (occurrence: None)
  Receive Date: 20060626
  Receipt Date: 20060616
  Transmission Date: 20061013
  Serious: No
  Sender: FDA-Public Use
  Company Number: TPA2004A00290

PATIENT
  Age: 74 Year
  Sex: Male

DRUGS (9)
  1. ACTOS [Suspect]
     Indication: DIABETES MELLITUS NON-INSULIN-DEPENDENT
     Dosage: PER ORAL
     Route: 048
  2. INSULIN [Concomitant]
  3. PRILOSEC [Concomitant]
  4. LASIX [Concomitant]
  5. ZYRTEC [Concomitant]
  6. ZESTRIL [Concomitant]
  7. ISOSORBIDE (ISOSORBIDE) [Concomitant]
  8. TERAZOSIN (TERAZOSIN) [Concomitant]
  9. PRAVACHOL [Concomitant]

REACTIONS (4)
  - DIABETIC RETINOPATHY [None]
  - MACULAR OEDEMA [None]
  - RETINAL ANEURYSM [None]
  - RETINAL EXUDATES [None]
